FAERS Safety Report 6670195-8 (Version None)
Quarter: 2010Q2

REPORT INFORMATION
  Report Type: 
  Country: None (occurrence: None)
  Receive Date: 20100405
  Receipt Date: 20091111
  Transmission Date: 20101027
  Serious: Yes (Other)
  Sender: FDA-Public Use
  Company Number: LEO-2010-00202

PATIENT
  Sex: Female

DRUGS (14)
  1. INNOHEP [Suspect]
     Indication: MATERNAL DRUGS AFFECTING FOETUS
     Dosage: TRANSPLACENTAL
     Route: 064
     Dates: start: 19990412
  2. ASPIRIN [Concomitant]
  3. MAGNESIUM TRISILICATE (MAGNESIUM TRISILICATE) [Concomitant]
  4. BETAMETHASONE [Concomitant]
  5. LABETALOL HCL [Concomitant]
  6. RANITIDINE [Concomitant]
  7. MAXOLON [Concomitant]
  8. FERROUS SULFATE TAB [Concomitant]
  9. THIOPENTAL SODIUM [Concomitant]
  10. SUXAMETHONIUM (SUXAMETHONIUM) [Concomitant]
  11. SYNTOCINON [Concomitant]
  12. AUGMENTIN '125' [Concomitant]
  13. MORPHINE [Concomitant]
  14. METODOPRAMINE (METOCLOPRAMIDE) [Concomitant]

REACTIONS (3)
  - CAESAREAN SECTION [None]
  - MATERNAL DRUGS AFFECTING FOETUS [None]
  - PREMATURE BABY [None]
